FAERS Safety Report 5748878-3 (Version None)
Quarter: 2008Q2

REPORT INFORMATION
  Report Type: 
  Country: None (occurrence: None)
  Receive Date: 20080522
  Receipt Date: 20080509
  Transmission Date: 20081010
  Serious: Yes (Other)
  Sender: FDA-Public Use
  Company Number: 2007US002421

PATIENT
  Age: 82 Year
  Sex: Female

DRUGS (3)
  1. AMEVIVE [Suspect]
     Indication: PSORIASIS
     Dosage: 15 MG, WEEKLY, INTRAMUSCULAR
     Route: 030
     Dates: start: 20070920, end: 20070927
  2. SYNTHROID [Concomitant]
  3. ESTROGENIC SUBSTANCE [Concomitant]

REACTIONS (1)
  - DIARRHOEA [None]
